FAERS Safety Report 8951059 (Version 2)
Quarter: 2012Q4

REPORT INFORMATION
  Report Type: 
  Country: US (occurrence: US)
  Receive Date: 20121207
  Receipt Date: 20121226
  Transmission Date: 20130627
  Serious: Yes (Other)
  Sender: FDA-Public Use
  Company Number: US-PFIZER INC-2012306090

PATIENT
  Age: 54 Year
  Sex: Male
  Weight: 68.03 kg

DRUGS (3)
  1. ADVIL [Suspect]
     Dosage: UNK
     Route: 048
  2. CELEBREX [Concomitant]
     Dosage: UNK
  3. PENICILLIN [Concomitant]

REACTIONS (3)
  - Hypersensitivity [Recovered/Resolved]
  - Urticaria [Recovered/Resolved]
  - Swelling [Recovered/Resolved]
